FAERS Safety Report 9220187 (Version 1)
Quarter: 2013Q2

REPORT INFORMATION
  Report Type: Spontaneous
  Country: US (occurrence: US)
  Receive Date: 20130408
  Receipt Date: 20130408
  Transmission Date: 20140414
  Serious: Yes (Other)
  Sender: FDA-Public Use
  Company Number: US-RB-051907-13

PATIENT
  Age: 31 Year
  Sex: Male

DRUGS (2)
  1. BUPRENORPHINE [Suspect]
     Route: 060
     Dates: start: 2006, end: 20130319
  2. BUPRENORPHINE [Suspect]
     Indication: DRUG DEPENDENCE
     Dosage: TOKK 4 MG ON TWO DIFFERENT OCCASIONS
     Route: 060
     Dates: start: 20130322

REACTIONS (5)
  - Injury [Recovered/Resolved]
  - Limb crushing injury [Not Recovered/Not Resolved]
  - Skin injury [Not Recovered/Not Resolved]
  - Pain [Not Recovered/Not Resolved]
  - Wrong technique in drug usage process [Recovered/Resolved]
